FAERS Safety Report 7532439-X (Version None)
Quarter: 2011Q2

REPORT INFORMATION
  Report Type: 
  Country: None (occurrence: None)
  Receive Date: 20110608
  Receipt Date: 20100720
  Transmission Date: 20111010
  Serious: Yes (Hospitalization)
  Sender: FDA-Public Use
  Company Number: US-VALEANT-2011VX001628

PATIENT
  Sex: Female
  Weight: 69 kg

DRUGS (1)
  1. LACRISERT [Suspect]
     Route: 047
     Dates: start: 19800101

REACTIONS (4)
  - INSOMNIA [None]
  - WRONG TECHNIQUE IN DRUG USAGE PROCESS [None]
  - MYCOBACTERIUM AVIUM COMPLEX INFECTION [None]
  - BLOOD CHOLESTEROL INCREASED [None]
